FAERS Safety Report 24792399 (Version 1)
Quarter: 2024Q4

REPORT INFORMATION
  Report Type: Report from Study
  Country: CA (occurrence: CA)
  Receive Date: 20241231
  Receipt Date: 20241231
  Transmission Date: 20250114
  Serious: Yes (Other)
  Sender: DR REDDYS
  Company Number: CA-Dr. Reddy^s Laboratories, Inc.-USA/CAN/19/0107017

PATIENT
  Age: 71 Year
  Sex: Female

DRUGS (7)
  1. ZOLEDRONIC ACID [Suspect]
     Active Substance: ZOLEDRONIC ACID
     Indication: Osteoporosis
     Dosage: 5 MG (BASE)/100 ML (0.05MG (BASE)/ML)
     Route: 051
     Dates: start: 20171214
  2. ZOLEDRONIC ACID [Suspect]
     Active Substance: ZOLEDRONIC ACID
     Dosage: 5 MG (BASE)/100 ML (0.05MG (BASE)/ML)
     Dates: start: 20190115
  3. ZOLEDRONIC ACID [Suspect]
     Active Substance: ZOLEDRONIC ACID
     Dosage: 5 MG (BASE)/100 ML (0.05MG (BASE)/ML)
     Dates: start: 20200115
  4. ZOLEDRONIC ACID [Suspect]
     Active Substance: ZOLEDRONIC ACID
     Dosage: 5 MG (BASE)/100 ML (0.05MG (BASE)/ML)
     Dates: start: 20201215
  5. ZOLEDRONIC ACID [Suspect]
     Active Substance: ZOLEDRONIC ACID
     Dosage: 5 MG (BASE)/100 ML (0.05MG (BASE)/ML)
     Dates: start: 20211123
  6. ZOLEDRONIC ACID [Suspect]
     Active Substance: ZOLEDRONIC ACID
     Dosage: 5 MG (BASE)/100 ML (0.05MG (BASE)/ML)
     Dates: start: 20230118
  7. ZOLEDRONIC ACID [Suspect]
     Active Substance: ZOLEDRONIC ACID
     Dosage: 5 MG (BASE)/100 ML (0.05MG (BASE)/ML)
     Dates: start: 20240117

REACTIONS (6)
  - Chronic obstructive pulmonary disease [Unknown]
  - Illness [Unknown]
  - Cough [Unknown]
  - Chills [Unknown]
  - Pain [Unknown]
  - Dyspnoea [Unknown]
